FAERS Safety Report 5113285-3 (Version None)
Quarter: 2006Q3

REPORT INFORMATION
  Report Type: 
  Country: None (occurrence: None)
  Receive Date: 20060920
  Receipt Date: 20060905
  Transmission Date: 20061208
  Serious: Yes (Hospitalization, Other)
  Sender: FDA-Public Use
  Company Number: USA0507103059

PATIENT
  Age: 54 Year
  Sex: Male
  Weight: 97.1 kg

DRUGS (8)
  1. ZYPREXA [Suspect]
     Indication: BIPOLAR DISORDER
     Dosage: SEE IMAGE
     Dates: end: 20050801
  2. ZYPREXA [Suspect]
     Indication: BIPOLAR DISORDER
     Dosage: SEE IMAGE
     Dates: start: 19990101
  3. ZYPREXA [Suspect]
     Indication: BIPOLAR DISORDER
     Dosage: SEE IMAGE
     Dates: start: 20000101
  4. GEODON [Concomitant]
  5. DEPAKOTE [Concomitant]
  6. CLOZARIL [Concomitant]
  7. WELLBUTRIN [Concomitant]
  8. REMERON [Concomitant]

REACTIONS (6)
  - DIABETES MELLITUS [None]
  - DIABETIC NEUROPATHY [None]
  - METABOLIC DISORDER [None]
  - MYOCARDIAL INFARCTION [None]
  - NEUROPATHY [None]
  - PRESCRIBED OVERDOSE [None]
